FAERS Safety Report 10312054 (Version 2)
Quarter: 2014Q3

REPORT INFORMATION
  Report Type: Report from Study
  Country: AR (occurrence: AR)
  Receive Date: 20140717
  Receipt Date: 20140717
  Transmission Date: 20150326
  Serious: Yes (Hospitalization, Other)
  Sender: FDA-Public Use
  Company Number: PHHY2014AR080343

PATIENT
  Age: 41 Year
  Sex: Female

DRUGS (1)
  1. EXFORGE [Suspect]
     Active Substance: AMLODIPINE BESYLATE\VALSARTAN
     Indication: HYPERTENSION
     Dosage: 1 TABLET (160/10 MG), DAIY
     Route: 048
     Dates: start: 20140626

REACTIONS (4)
  - Haemorrhage intracranial [Recovering/Resolving]
  - Feeling abnormal [Recovering/Resolving]
  - Blood pressure increased [Recovering/Resolving]
  - Ruptured cerebral aneurysm [Recovering/Resolving]

NARRATIVE: CASE EVENT DATE: 20140626
